FAERS Safety Report 7630106-5 (Version None)
Quarter: 2011Q3

REPORT INFORMATION
  Report Type: 
  Country: None (occurrence: None)
  Receive Date: 20110722
  Receipt Date: 20110719
  Transmission Date: 20111222
  Serious: No
  Sender: FDA-Public Use
  Company Number: US-PFIZER INC-2011164044

PATIENT
  Sex: Male
  Weight: 65.76 kg

DRUGS (3)
  1. IBUPROFEN (ADVIL) [Suspect]
     Indication: MUSCULOSKELETAL PAIN
  2. IBUPROFEN (ADVIL) [Suspect]
     Indication: ARTHRALGIA
     Dosage: UNK
     Route: 048
     Dates: start: 20110701
  3. COUMADIN [Concomitant]
     Dosage: UNK

REACTIONS (1)
  - DIZZINESS [None]
